FAERS Safety Report 11119595 (Version 2)
Quarter: 2015Q2

REPORT INFORMATION
  Report Type: Report from Study
  Country: GB (occurrence: GB)
  Receive Date: 20150518
  Receipt Date: 20150520
  Transmission Date: 20150821
  Serious: Yes (Hospitalization, Other)
  Sender: FDA-Public Use
  Company Number: GB-GLAXOSMITHKLINE-GB2015GSK065422

PATIENT
  Sex: Male
  Weight: 90.8 kg

DRUGS (17)
  1. NYSTATIN. [Concomitant]
     Active Substance: NYSTATIN
     Indication: MOUTH ULCERATION
     Dosage: 1 ML, QID
     Route: 048
     Dates: start: 20150328
  2. NORMAL SALINE [Concomitant]
     Active Substance: SODIUM CHLORIDE
     Indication: MOUTH ULCERATION
     Dosage: 10 ML, QID
     Route: 048
     Dates: start: 20150211
  3. ASPARAGINASE [Suspect]
     Active Substance: ASPARAGINASE
     Indication: ACUTE LYMPHOCYTIC LEUKAEMIA
     Dosage: 2300 IU,DAY 4 AND DAY 18
     Route: 042
     Dates: start: 20150125, end: 20150208
  4. COTRIMOXAZOLE [Concomitant]
     Active Substance: SULFAMETHOXAZOLE\TRIMETHOPRIM
     Indication: INFECTION PROPHYLAXIS
     Dosage: 480 MG,ONCE DAILY
     Route: 048
     Dates: start: 20150114
  5. CYTARABINE. [Concomitant]
     Active Substance: CYTARABINE
     Dosage: 61.25 MG, UNK
     Route: 042
     Dates: start: 20150309, end: 20150403
  6. ZARZIO [Concomitant]
     Active Substance: FILGRASTIM
     Indication: NEUTROPHIL COUNT DECREASED
     Dosage: 300 MG, UNK
     Dates: start: 20150413, end: 20150419
  7. PARACETAMOL [Concomitant]
     Active Substance: ACETAMINOPHEN
     Indication: PAIN
     Dosage: 1000 MG, PRN
     Route: 048
     Dates: start: 20150327
  8. CIPROFLOXACIN. [Concomitant]
     Active Substance: CIPROFLOXACIN
     Indication: INFECTION
     Dosage: 500 MG, BID
     Route: 048
     Dates: start: 20150328, end: 20150404
  9. TAZOCIN [Concomitant]
     Active Substance: PIPERACILLIN SODIUM\TAZOBACTAM SODIUM
     Indication: INFECTION
     Dosage: 4.5 G, UNK
     Route: 042
     Dates: start: 20150413, end: 20150415
  10. DALTEPARIN [Concomitant]
     Active Substance: DALTEPARIN
     Indication: PULMONARY EMBOLISM
     Dosage: 5000 MG, UNK
     Route: 058
     Dates: start: 20150120
  11. OMEPRAZOLE. [Concomitant]
     Active Substance: OMEPRAZOLE
     Indication: PROPHYLAXIS
     Dosage: 20 MG, UNK
     Route: 048
     Dates: start: 20150328
  12. AMOXICILLIN. [Concomitant]
     Active Substance: AMOXICILLIN
     Indication: INFECTION
     Dosage: 1.4 G, UNK
     Route: 042
     Dates: start: 20150413, end: 20150414
  13. ONDANSETRON [Concomitant]
     Active Substance: ONDANSETRON
     Indication: NAUSEA
     Dosage: 8 MG, UNK
     Route: 048
     Dates: start: 20150328
  14. BENZYDAMINE [Concomitant]
     Active Substance: BENZYDAMINE
     Indication: MOUTH ULCERATION
     Dosage: 10 ML, QID
     Route: 048
     Dates: start: 20150201
  15. NELARABINE [Suspect]
     Active Substance: NELARABINE
     Indication: ACUTE LYMPHOCYTIC LEUKAEMIA
     Dosage: 3225 MG, CYC
     Route: 042
     Dates: start: 20150411, end: 20150413
  16. ACICLOVIR [Concomitant]
     Active Substance: ACYCLOVIR
     Indication: FUNGAL INFECTION
     Dosage: 400 MG, BID
     Route: 048
     Dates: start: 20150114
  17. MERCAPTOPURINE. [Concomitant]
     Active Substance: MERCAPTOPURINE
     Indication: ACUTE LYMPHOCYTIC LEUKAEMIA
     Dosage: 125 MG, UNK
     Route: 048
     Dates: start: 20150309, end: 20150404

REACTIONS (1)
  - Leukoencephalopathy [Recovered/Resolved]

NARRATIVE: CASE EVENT DATE: 20150415
